FAERS Safety Report 23812684 (Version 2)
Quarter: 2024Q3

REPORT INFORMATION
  Report Type: Report from Study
  Country: US (occurrence: US)
  Receive Date: 20240503
  Receipt Date: 20240703
  Transmission Date: 20241017
  Serious: Yes (Other)
  Sender: GILEAD
  Company Number: US-GILEAD-2024-0670354

PATIENT
  Sex: Female

DRUGS (6)
  1. AMBRISENTAN [Suspect]
     Active Substance: AMBRISENTAN
     Indication: Pulmonary hypertension
     Dosage: 10 MG, QD
     Route: 065
     Dates: start: 20230105
  2. AMBRISENTAN [Suspect]
     Active Substance: AMBRISENTAN
     Indication: Pulmonary arterial hypertension
     Dosage: 10 MG, QD
     Route: 065
     Dates: start: 20240111
  3. TYVASO [Suspect]
     Active Substance: TREPROSTINIL
     Indication: Product used for unknown indication
     Dosage: WAS ON 3 BREATHS
     Route: 065
     Dates: end: 20240416
  4. TYVASO [Suspect]
     Active Substance: TREPROSTINIL
     Dosage: 1 BREATH PER TREATMENT
     Route: 065
     Dates: start: 20240419
  5. ELIQUIS [Concomitant]
     Active Substance: APIXABAN
  6. ADEMPAS [Concomitant]
     Active Substance: RIOCIGUAT

REACTIONS (7)
  - Lung neoplasm malignant [Unknown]
  - Oedema [Unknown]
  - Haemoptysis [Unknown]
  - Palpitations [Unknown]
  - Heart rate increased [Unknown]
  - Cough [Unknown]
  - Oxygen saturation abnormal [Unknown]
